FAERS Safety Report 5489446-0 (Version None)
Quarter: 2007Q4

REPORT INFORMATION
  Report Type: 
  Country: None (occurrence: None)
  Receive Date: 20071009
  Receipt Date: 20061012
  Transmission Date: 20080405
  Serious: Yes (Other)
  Sender: FDA-Public Use
  Company Number: 2006US002271

PATIENT
  Age: 14 Year
  Sex: Male

DRUGS (1)
  1. AMBISOME [Suspect]
     Indication: DRUG USE FOR UNKNOWN INDICATION

REACTIONS (1)
  - VENOOCCLUSIVE LIVER DISEASE [None]
